FAERS Safety Report 6764256-2 (Version None)
Quarter: 2010Q2

REPORT INFORMATION
  Report Type: 
  Country: None (occurrence: None)
  Receive Date: 20100608
  Receipt Date: 20100524
  Transmission Date: 20101027
  Serious: Yes (Other)
  Sender: FDA-Public Use
  Company Number: AUR-APL-2010-01375

PATIENT
  Age: 65 Year
  Sex: Female

DRUGS (2)
  1. GABAPENTIN [Suspect]
     Indication: NEURALGIA
     Dosage: 100-500MG TID-QID ORAL
     Route: 048
     Dates: start: 20091001
  2. TARCEVA [Suspect]
     Indication: LUNG ADENOCARCINOMA
     Dosage: 150MG - DAILY - ORAL
     Route: 048
     Dates: start: 20091209

REACTIONS (5)
  - DIARRHOEA [None]
  - DRUG INTERACTION [None]
  - FOLLICULITIS [None]
  - MUCOSAL INFLAMMATION [None]
  - RASH [None]
